FAERS Safety Report 17211010 (Version 2)
Quarter: 2020Q1

REPORT INFORMATION
  Report Type: Report from Study
  Country: US (occurrence: US)
  Receive Date: 20191227
  Receipt Date: 20200127
  Transmission Date: 20200409
  Serious: Yes (Life-Threatening, Hospitalization)
  Sender: FDA-Public Use
  Company Number: US-BAXTER-2019BAX026050

PATIENT
  Age: 3 Year
  Sex: Male
  Weight: 21.6 kg

DRUGS (31)
  1. METHOTREXATE. [Suspect]
     Active Substance: METHOTREXATE
     Dosage: DAYS 1 AND 31
     Route: 037
     Dates: start: 20191211
  2. DEXAMETHASONE. [Suspect]
     Active Substance: DEXAMETHASONE
     Indication: ACUTE LYMPHOCYTIC LEUKAEMIA
     Dosage: TABLET; DAYS 1-7 AND 15-21; FIRST DOSE
     Route: 048
     Dates: start: 20190821
  3. DEXAMETHASONE. [Suspect]
     Active Substance: DEXAMETHASONE
     Dosage: TABLET; LAST DOSE PRIOR TO SAES
     Route: 048
     Dates: start: 20190910, end: 20190910
  4. CYTARABINE. [Suspect]
     Active Substance: CYTARABINE
     Indication: ACUTE LYMPHOCYTIC LEUKAEMIA
     Dosage: DAYS 29-32 AND 36-39; FIRST DOSE
     Route: 042
     Dates: start: 20190924
  5. THIOGUANINE [Suspect]
     Active Substance: THIOGUANINE
     Dosage: TABLET; LAST DOSE PRIOR TO SAES
     Route: 048
     Dates: start: 20191007, end: 20191007
  6. METHOTREXATE. [Suspect]
     Active Substance: METHOTREXATE
     Dosage: STARTING DOSE 100 MG/M2 AND ESCALATE BY 50MG/M2/DOSE - DAY 1, 11, 21, 31, 41
     Route: 042
     Dates: start: 20191211
  7. CYCLOPHOSPHAMIDE FOR INJECTION, USP [Suspect]
     Active Substance: CYCLOPHOSPHAMIDE
     Indication: ACUTE LYMPHOCYTIC LEUKAEMIA
     Dosage: LAST DOSE PRIOR TO CONSTIPATION AND DEHYDRATION SECOND EPISODES, HYPOGLYCEMIA, DAY 29; FIRST DOSE
     Route: 042
     Dates: start: 20190924, end: 20190924
  8. METHOTREXATE. [Suspect]
     Active Substance: METHOTREXATE
     Indication: ACUTE LYMPHOCYTIC LEUKAEMIA
     Dosage: DAYS 1, 29 AND 36; FIRST DOSE
     Route: 037
     Dates: start: 20190821
  9. METHOTREXATE. [Suspect]
     Active Substance: METHOTREXATE
     Dosage: LAST DOSE PRIOR TO SAES OF MUCOSITIS, DEHYDRATION 1ST EPISODE, CONSTIPATION (1ST, 3RD EPISODE), ANOR
     Route: 037
     Dates: start: 20191107, end: 20191107
  10. INCB018424 [Suspect]
     Active Substance: RUXOLITINIB
     Dosage: TABLET; LAST DOSE PRIOR TO SAES OF CONSTIPATION 1ST EPISODE,DEHYDRATION 2ND EPISODE, HYPOGLYCEMIA
     Route: 048
     Dates: start: 20191008, end: 20191008
  11. VINCRISTINE [Suspect]
     Active Substance: VINCRISTINE
     Dosage: DAYS 1, 11, 21, 31, AND 41
     Route: 042
     Dates: start: 20191107, end: 20191206
  12. INCB018424 [Suspect]
     Active Substance: RUXOLITINIB
     Indication: ACUTE LYMPHOCYTIC LEUKAEMIA
     Dosage: TABLET; DAY 1-14 AND 29-42; FIRST DOSE
     Route: 048
     Dates: start: 20190821
  13. ASPARAGINASE [Suspect]
     Active Substance: ASPARAGINASE
     Dosage: DAYS 2 AND 22 PER PROTOCOL; THREE TIMES PER WEEK X2 WEEKS FOR EACH DOSE
     Route: 030
     Dates: start: 20191108
  14. ASPARAGINASE [Suspect]
     Active Substance: ASPARAGINASE
     Dosage: LAST DOSE PRIOR TO SAES OF MUCOSITIS, DEHYDRATION 1ST EPISODE, CONSTIPATION (1ST, 3RD EPISODE), ANOR
     Route: 030
     Dates: start: 20191209, end: 20191209
  15. METHOTREXATE. [Suspect]
     Active Substance: METHOTREXATE
     Dosage: DAYS 1 AND 31
     Route: 037
     Dates: start: 20191107, end: 20191206
  16. LORAZEPAM. [Concomitant]
     Active Substance: LORAZEPAM
     Indication: PRODUCT USED FOR UNKNOWN INDICATION
     Route: 065
     Dates: start: 20191209, end: 20191209
  17. INCB018424 [Suspect]
     Active Substance: RUXOLITINIB
     Dosage: TABLET; DAY 1-10 AND 21-30 AND 41-50
     Route: 048
     Dates: start: 20191220
  18. VINCRISTINE [Suspect]
     Active Substance: VINCRISTINE
     Dosage: DAY 1,11, 21, 31 AND 41
     Route: 042
     Dates: start: 20191211
  19. ASPARAGINASE [Suspect]
     Active Substance: ASPARAGINASE
     Dosage: LAST DOSE PRIOR TO SAES OF CONSTIPATION2ND EPISODE, DEHYDRATION 2ND EPISODE,AND HYPOGLYCEMIA
     Route: 030
     Dates: start: 20191017, end: 20191017
  20. METHOTREXATE. [Suspect]
     Active Substance: METHOTREXATE
     Dosage: LAST DOSE PRIOR TO SAES OF CONSTIPATION2ND EPISODE, DEHYDRATION 2ND EPISODE,AND HYPOGLYCEMIA
     Route: 037
     Dates: start: 20191002, end: 20191002
  21. INCB018424 [Suspect]
     Active Substance: RUXOLITINIB
     Dosage: TABLET; DAYS 1-10, 21-30, AND 41-50
     Route: 048
     Dates: start: 20191127, end: 20191206
  22. CYTARABINE. [Suspect]
     Active Substance: CYTARABINE
     Dosage: THE LAST DOSE PRIOR TO THE SAES CONSTIPATION 1ST EPISODE,DEHYDRATION (SECOND EPISODE),AND HYPOGLYCEM
     Route: 042
     Dates: start: 20191005, end: 20191005
  23. THIOGUANINE [Suspect]
     Active Substance: THIOGUANINE
     Indication: ACUTE LYMPHOCYTIC LEUKAEMIA
     Dosage: TABLET; DAYS 29-42; FIRST DOSE
     Route: 048
     Dates: start: 20190924
  24. CYPROHEPTADINE. [Concomitant]
     Active Substance: CYPROHEPTADINE
     Indication: PRODUCT USED FOR UNKNOWN INDICATION
     Route: 065
     Dates: start: 20191209
  25. VINCRISTINE [Suspect]
     Active Substance: VINCRISTINE
     Indication: ACUTE LYMPHOCYTIC LEUKAEMIA
     Dosage: DAYS 43 AND 50; FIRST DOSE
     Route: 042
     Dates: start: 20190821
  26. VINCRISTINE [Suspect]
     Active Substance: VINCRISTINE
     Dosage: LAST DOSE PRIOR TO SAES OF CONSTIPATION2ND EPISODE, DEHYDRATION 2ND EPISODE,AND HYPOGLYCEMIA
     Route: 042
     Dates: start: 20191015, end: 20191015
  27. VINCRISTINE [Suspect]
     Active Substance: VINCRISTINE
     Dosage: LAST DOSE PRIOR TO SAES OF MUCOSITIS, DEHYDRATION 1ST EPISODE, CONSTIPATION (1ST, 3RD EPISODE), ANOR
     Route: 042
     Dates: start: 20191127, end: 20191127
  28. ASPARAGINASE [Suspect]
     Active Substance: ASPARAGINASE
     Indication: ACUTE LYMPHOCYTIC LEUKAEMIA
     Dosage: THREE TIMES PER WEEK X2 WEEKS; FIRST DOSE
     Route: 030
     Dates: start: 20190827
  29. METHOTREXATE. [Suspect]
     Active Substance: METHOTREXATE
     Indication: ACUTE LYMPHOCYTIC LEUKAEMIA
     Dosage: FIRST DOSE; STARTING DOSE 100 MG/M2 AND ESCALATE BY 50MG/M2/DOSE - DAY 1, 11, 21, 31, 41
     Route: 042
     Dates: start: 20191107, end: 20191206
  30. METHOTREXATE. [Suspect]
     Active Substance: METHOTREXATE
     Dosage: LAST DOSE PRIOR TO SAES
     Route: 042
     Dates: start: 20191127, end: 20191127
  31. BACTRIM [Concomitant]
     Active Substance: SULFAMETHOXAZOLE\TRIMETHOPRIM
     Indication: PRODUCT USED FOR UNKNOWN INDICATION
     Route: 065
     Dates: start: 20191209

REACTIONS (11)
  - Constipation [Recovered/Resolved]
  - Decreased appetite [Recovering/Resolving]
  - Constipation [Recovered/Resolved]
  - Vomiting [Recovered/Resolved]
  - Mucosal inflammation [Recovered/Resolved]
  - Constipation [Unknown]
  - Lethargy [Recovered/Resolved]
  - Dehydration [Recovered/Resolved]
  - Dehydration [Recovered/Resolved]
  - Hypoglycaemia [Recovered/Resolved]
  - Abdominal pain [Recovering/Resolving]

NARRATIVE: CASE EVENT DATE: 20191015
